FAERS Safety Report 16624070 (Version 1)
Quarter: 2019Q3

REPORT INFORMATION
  Report Type: Report from Study
  Country: ES (occurrence: ES)
  Receive Date: 20190724
  Receipt Date: 20190724
  Transmission Date: 20191004
  Serious: Yes (Other)
  Sender: FDA-Public Use
  Company Number: ES-ACCORD-144817

PATIENT
  Age: 82 Year
  Sex: Female

DRUGS (11)
  1. CARDYL [Concomitant]
     Active Substance: ATORVASTATIN CALCIUM
     Dosage: 0-0-1
     Route: 048
     Dates: start: 2011
  2. UNIKET [Concomitant]
     Active Substance: ISOSORBIDE MONONITRATE
     Dosage: 1-1-1
     Route: 048
     Dates: start: 2003
  3. ORFIDAL [Concomitant]
     Active Substance: LORAZEPAM
     Dosage: 1 MG
  4. EMCONCOR COR [Concomitant]
     Active Substance: BISOPROLOL
     Dosage: 1-0-0
     Route: 048
     Dates: start: 2012
  5. OMEPRAZOLE. [Concomitant]
     Active Substance: OMEPRAZOLE
     Dosage: 20 MG
  6. FERROSANOL [Concomitant]
     Active Substance: FERROUS GLUCONATE
  7. CAFINITRINE [Concomitant]
     Dosage: COATED
  8. SEGURIL [Suspect]
     Active Substance: FUROSEMIDE
     Indication: CARDIAC FAILURE
     Dosage: 20 MG / 2ML,
     Route: 042
     Dates: start: 2018
  9. FUROSEMIDE. [Suspect]
     Active Substance: FUROSEMIDE
     Indication: CARDIAC FAILURE
     Dosage: 1-0-0
     Route: 048
     Dates: start: 20180117
  10. NOVOMIX [Concomitant]
     Active Substance: INSULIN ASPART
     Dosage: 30 FLEXPEN 100 U / ML
  11. ELIQUIS [Concomitant]
     Active Substance: APIXABAN
     Dosage: 1-0-1
     Route: 048
     Dates: start: 20180118

REACTIONS (1)
  - Chronic kidney disease [Recovered/Resolved]

NARRATIVE: CASE EVENT DATE: 20180720
